FAERS Safety Report 21968322 (Version 1)
Quarter: 2023Q1

REPORT INFORMATION
  Report Type: Spontaneous
  Country: US (occurrence: None)
  Receive Date: 20230207
  Receipt Date: 20230207
  Transmission Date: 20230417
  Serious: No
  Sender: FDA-Public Use
  Company Number: None

PATIENT
  Sex: Female

DRUGS (21)
  1. LETAIRIS [Suspect]
     Active Substance: AMBRISENTAN
     Indication: Pulmonary arterial hypertension
     Dosage: FREQUENCY : DAILY;?
     Route: 048
  2. OMEPRAZOLE MAGNESIUM [Concomitant]
     Active Substance: OMEPRAZOLE MAGNESIUM
  3. FLONASE ALLERGY RELIEF [Concomitant]
     Active Substance: FLUTICASONE PROPIONATE
  4. ALLOPURINOL [Concomitant]
     Active Substance: ALLOPURINOL
  5. POTASSIUM/MAGNESIUM ASPAR [Concomitant]
  6. VITAMIN D [Concomitant]
     Active Substance: VITAMIN D NOS
  7. TYLENOL COLD MAX [Concomitant]
  8. LEVOTHYROXINE SODIUM [Concomitant]
     Active Substance: LEVOTHYROXINE SODIUM
  9. VENTOLIN HFA [Concomitant]
  10. UPTRAVI [Concomitant]
     Active Substance: SELEXIPAG
  11. ATORVASTATIN CALCIUM [Concomitant]
     Active Substance: ATORVASTATIN CALCIUM
  12. ROBITUSSIN CHILDRENS COUG [Concomitant]
  13. MAGNESIUM ELEMENTAL [Concomitant]
  14. SPIRONOLACTONE [Concomitant]
     Active Substance: SPIRONOLACTONE
  15. CALCIUM [Concomitant]
     Active Substance: CALCIUM
  16. MIRALAX [Concomitant]
     Active Substance: POLYETHYLENE GLYCOL 3350
  17. HYDROXYCHLOROQUINE SULFATE [Concomitant]
     Active Substance: HYDROXYCHLOROQUINE SULFATE
  18. MAGNESIUM [Concomitant]
     Active Substance: MAGNESIUM
  19. FUROSEMIDE [Concomitant]
     Active Substance: FUROSEMIDE
  20. CINACALCET HYDROCHLORIDE [Concomitant]
     Active Substance: CINACALCET HYDROCHLORIDE
  21. DIGOXIN		| WARFARIN SODIUM [Concomitant]

REACTIONS (3)
  - Abdominal distension [None]
  - Fluid retention [None]
  - Hypertension [None]
